FAERS Safety Report 6060808-6 (Version None)
Quarter: 2009Q1

REPORT INFORMATION
  Report Type: 
  Country: None (occurrence: None)
  Receive Date: 20090202
  Receipt Date: 20090122
  Transmission Date: 20090719
  Serious: Yes (Other)
  Sender: FDA-Public Use
  Company Number: PHBS2009TR00582

PATIENT

DRUGS (1)
  1. CARBAMAZEPINE [Suspect]

REACTIONS (2)
  - CENTRAL NERVOUS SYSTEM LESION [None]
  - DRUG WITHDRAWAL SYNDROME [None]
